FAERS Safety Report 5577942-7 (Version None)
Quarter: 2007Q4

REPORT INFORMATION
  Report Type: 
  Country: None (occurrence: None)
  Receive Date: 20071130
  Receipt Date: 20070629
  Transmission Date: 20080405
  Serious: No
  Sender: FDA-Public Use
  Company Number: US200707000467

PATIENT
  Age: 69 Year
  Sex: Female

DRUGS (4)
  1. BYETTA [Suspect]
     Indication: TYPE 2 DIABETES MELLITUS
     Dosage: 5 UG, 2/D, SUBCUTANEOUS
     Route: 058
     Dates: start: 20070624
  2. LANTUS [Concomitant]
  3. GLUCOTROL [Concomitant]
  4. METFORMIN HCL [Concomitant]

REACTIONS (5)
  - DYSPEPSIA [None]
  - ERUCTATION [None]
  - HICCUPS [None]
  - INJECTION SITE PAIN [None]
  - NAUSEA [None]
